FAERS Safety Report 7485680-9 (Version None)
Quarter: 2011Q2

REPORT INFORMATION
  Report Type: 
  Country: None (occurrence: None)
  Receive Date: 20110517
  Receipt Date: 20100608
  Transmission Date: 20111010
  Serious: No
  Sender: FDA-Public Use
  Company Number: US-PFIZER INC-2010071174

PATIENT
  Age: 42 Year
  Sex: Male

DRUGS (3)
  1. LAMOTRIGINE [Concomitant]
     Indication: CONVULSION
     Dosage: 100 MG, 2X/DAY
     Route: 048
  2. DILANTIN [Concomitant]
     Indication: CONVULSION
     Dosage: 100 MG, 1X/DAY
     Route: 048
  3. NICOTROL [Suspect]
     Indication: SMOKING CESSATION THERAPY
     Dosage: UNK
     Route: 055
     Dates: start: 20100516, end: 20100522

REACTIONS (4)
  - DYSPEPSIA [None]
  - ABDOMINAL DISCOMFORT [None]
  - DIARRHOEA [None]
  - FLATULENCE [None]
